FAERS Safety Report 16265224 (Version 1)
Quarter: 2019Q2

REPORT INFORMATION
  Report Type: Spontaneous
  Country: US (occurrence: US)
  Receive Date: 20190501
  Receipt Date: 20190501
  Transmission Date: 20190711
  Serious: Yes (Hospitalization)
  Sender: FDA-Public Use
  Company Number: None

PATIENT
  Age: 55 Year
  Sex: Female
  Weight: 90.7 kg

DRUGS (15)
  1. OS-CAL ULTRA [Concomitant]
  2. OMNIPAQUE [Concomitant]
     Active Substance: IOHEXOL
  3. FENTANYL. [Concomitant]
     Active Substance: FENTANYL
  4. COLACE [Concomitant]
     Active Substance: DOCUSATE SODIUM
  5. FERROUS SULFATE. [Concomitant]
     Active Substance: FERROUS SULFATE
  6. LIDOCAINE. [Concomitant]
     Active Substance: LIDOCAINE
  7. GABAPENTIN. [Concomitant]
     Active Substance: GABAPENTIN
  8. ARANESP [Concomitant]
     Active Substance: DARBEPOETIN ALFA
  9. VITAMIN D NOS [Concomitant]
     Active Substance: VITAMIN D NOS
  10. IBUPROFEN. [Concomitant]
     Active Substance: IBUPROFEN
  11. EMLA [Concomitant]
     Active Substance: LIDOCAINE\PRILOCAINE
  12. PERCOCET [Concomitant]
     Active Substance: ACETAMINOPHEN\OXYCODONE HYDROCHLORIDE
  13. XGEVA [Concomitant]
     Active Substance: DENOSUMAB
  14. AFINITOR [Suspect]
     Active Substance: EVEROLIMUS
     Indication: RENAL CANCER
     Route: 048
     Dates: start: 20181119, end: 20190501
  15. SYNTHROID [Concomitant]
     Active Substance: LEVOTHYROXINE SODIUM

REACTIONS (1)
  - Device related infection [None]

NARRATIVE: CASE EVENT DATE: 20190429
